FAERS Safety Report 7236536-8 (Version None)
Quarter: 2011Q1

REPORT INFORMATION
  Report Type: 
  Country: None (occurrence: None)
  Receive Date: 20110112
  Receipt Date: 20101228
  Transmission Date: 20110831
  Serious: Yes (Other)
  Sender: FDA-Public Use
  Company Number: 2010005471

PATIENT

DRUGS (6)
  1. MULTI-VITAMINS [Concomitant]
  2. TARCEVA [Suspect]
     Indication: NON-SMALL CELL LUNG CANCER
     Dosage: (MG), ORAL
     Route: 048
  3. NEO-MEDROL (NEO-MEDROL) [Concomitant]
  4. LOPERAMIDE HCL [Concomitant]
  5. UREPEARL (UREA) [Concomitant]
  6. SAHNE (RETINOL) [Concomitant]

REACTIONS (1)
  - FRACTURE [None]
